FAERS Safety Report 21897656 (Version 1)
Quarter: 2023Q1

REPORT INFORMATION
  Report Type: Spontaneous
  Country: US (occurrence: None)
  Receive Date: 20230120
  Receipt Date: 20230120
  Transmission Date: 20230417
  Serious: Yes (Hospitalization)
  Sender: FDA-Public Use
  Company Number: None

PATIENT
  Age: 48 Year
  Sex: Male
  Weight: 100.7 kg

DRUGS (3)
  1. BEVACIZUMAB [Suspect]
     Active Substance: BEVACIZUMAB
     Indication: Glioblastoma multiforme
     Dosage: OTHER STRENGTH : 15MG/KG;?
     Route: 042
     Dates: start: 20191024, end: 20191114
  2. NIVOLUMAB [Suspect]
     Active Substance: NIVOLUMAB
     Indication: Glioblastoma multiforme
     Dosage: OTHER STRENGTH : 3MG/KG;?
     Route: 042
     Dates: start: 20191024, end: 20191114
  3. IPILIMUMAB [Suspect]
     Active Substance: IPILIMUMAB

REACTIONS (19)
  - Confusional state [None]
  - Ataxia [None]
  - Pyrexia [None]
  - Hyperhidrosis [None]
  - Gait disturbance [None]
  - Vasogenic cerebral oedema [None]
  - Aspartate aminotransferase increased [None]
  - Alanine aminotransferase increased [None]
  - Anaemia [None]
  - Neoplasm progression [None]
  - Hypertransaminasaemia [None]
  - Aortic aneurysm [None]
  - Blood disorder [None]
  - Lymphatic disorder [None]
  - International normalised ratio increased [None]
  - Lymphocyte count decreased [None]
  - Hypoalbuminaemia [None]
  - Aphasia [None]
  - Headache [None]

NARRATIVE: CASE EVENT DATE: 20191127
